FAERS Safety Report 20030050 (Version 6)
Quarter: 2022Q3

REPORT INFORMATION
  Report Type: Report from Study
  Country: US (occurrence: US)
  Receive Date: 20211103
  Receipt Date: 20220629
  Transmission Date: 20221026
  Serious: Yes (Other)
  Sender: FDA-Public Use
  Company Number: US-NOVARTISTESTPH-NVSC2021US251680

PATIENT
  Sex: Female

DRUGS (4)
  1. ENTRESTO [Suspect]
     Active Substance: SACUBITRIL\VALSARTAN
     Indication: Cardiac failure
     Dosage: 50 MG, BID, (24/26 MG)
     Route: 048
     Dates: start: 202105
  2. ENTRESTO [Suspect]
     Active Substance: SACUBITRIL\VALSARTAN
     Dosage: 100 MG, BID, (49/51 MG)
     Route: 048
  3. ENTRESTO [Suspect]
     Active Substance: SACUBITRIL\VALSARTAN
     Dosage: UNK, BID
     Route: 048
  4. MOBIC [Suspect]
     Active Substance: MELOXICAM
     Indication: Inflammation
     Dosage: UNK
     Route: 065

REACTIONS (14)
  - Cardiac failure congestive [Unknown]
  - Spinal fracture [Unknown]
  - Bone disorder [Unknown]
  - Blood pressure inadequately controlled [Unknown]
  - Back pain [Not Recovered/Not Resolved]
  - Stress fracture [Unknown]
  - Visual impairment [Not Recovered/Not Resolved]
  - Peripheral swelling [Recovered/Resolved]
  - Amnesia [Unknown]
  - Balance disorder [Unknown]
  - Arthralgia [Unknown]
  - Hypertension [Unknown]
  - Chronic obstructive pulmonary disease [Not Recovered/Not Resolved]
  - Cough [Not Recovered/Not Resolved]
